FAERS Safety Report 17912985 (Version 1)
Quarter: 2020Q2

REPORT INFORMATION
  Report Type: Spontaneous
  Country: US (occurrence: US)
  Receive Date: 20200618
  Receipt Date: 20200618
  Transmission Date: 20200714
  Serious: Yes (Other)
  Sender: FDA-Public Use
  Company Number: US-PFIZER INC-2020236405

PATIENT
  Age: 65 Year
  Sex: Male

DRUGS (1)
  1. LEVETIRACETAM. [Suspect]
     Active Substance: LEVETIRACETAM
     Indication: EPILEPSY
     Dosage: UNK

REACTIONS (5)
  - Vertigo [Unknown]
  - Chronic obstructive pulmonary disease [Unknown]
  - Seizure [Unknown]
  - Confusional state [Unknown]
  - Tobacco user [Not Recovered/Not Resolved]
